FAERS Safety Report 21749678 (Version 5)
Quarter: 2023Q2

REPORT INFORMATION
  Report Type: Report from Study
  Country: US (occurrence: US)
  Receive Date: 20221219
  Receipt Date: 20230412
  Transmission Date: 20230722
  Serious: No
  Sender: FDA-Public Use
  Company Number: US-002147023-NVSC2022US293146

PATIENT
  Age: 60 Year
  Sex: Female

DRUGS (2)
  1. ENTRESTO [Suspect]
     Active Substance: SACUBITRIL\VALSARTAN
     Indication: Cardiac failure
     Dosage: 1 DOSAGE FORM, BID (24/26 MG)
     Route: 048
     Dates: start: 202210
  2. METOPROLOL [Suspect]
     Active Substance: METOPROLOL
     Indication: Product used for unknown indication
     Dosage: UNK, UNKNOWN
     Route: 048

REACTIONS (7)
  - Constipation [Not Recovered/Not Resolved]
  - Weight abnormal [Not Recovered/Not Resolved]
  - Weight increased [Recovered/Resolved]
  - Memory impairment [Unknown]
  - Condition aggravated [Unknown]
  - Swelling face [Unknown]
  - Peripheral swelling [Unknown]

NARRATIVE: CASE EVENT DATE: 20230201
